FAERS Safety Report 10029227 (Version 1)
Quarter: 2014Q1

REPORT INFORMATION
  Report Type: Report from Study
  Country: NL (occurrence: NL)
  Receive Date: 20140321
  Receipt Date: 20140321
  Transmission Date: 20141002
  Serious: Yes (Other)
  Sender: FDA-Public Use
  Company Number: PHHY2014NL033114

PATIENT
  Sex: Male

DRUGS (4)
  1. ZOMETA [Suspect]
     Indication: METASTASES TO BONE
     Dosage: 4 MG/100ML, ONCE EVERY 4 WEEKS
     Route: 042
  2. ZOMETA [Suspect]
     Dosage: 4 MG/100ML, ONCE EVERY 4 WEEKS
     Route: 042
     Dates: start: 20131203
  3. ZOMETA [Suspect]
     Dosage: 4 MG/100ML, ONCE EVERY 4 WEEKS
     Route: 042
     Dates: start: 20140227
  4. ZOMETA [Suspect]
     Dosage: 4 MG/100ML, ONCE EVERY 4 WEEKS
     Route: 042
     Dates: start: 20140317

REACTIONS (1)
  - Terminal state [Not Recovered/Not Resolved]
